FAERS Safety Report 7974337-3 (Version None)
Quarter: 2011Q4

REPORT INFORMATION
  Report Type: 
  Country: None (occurrence: None)
  Receive Date: 20111209
  Receipt Date: 20111128
  Transmission Date: 20120403
  Serious: Yes (Other)
  Sender: FDA-Public Use
  Company Number: 2011ST000493

PATIENT
  Sex: Female

DRUGS (2)
  1. ABELCET [Suspect]
     Indication: PRODUCT USED FOR UNKNOWN INDICATION
     Dosage: QW;INH
     Route: 055
     Dates: start: 20110101
  2. TOBI [Suspect]
     Indication: PRODUCT USED FOR UNKNOWN INDICATION
     Dosage: QD;INH
     Route: 055

REACTIONS (1)
  - OBSTRUCTIVE AIRWAYS DISORDER [None]
